FAERS Safety Report 21152591 (Version 2)
Quarter: 2023Q2

REPORT INFORMATION
  Report Type: Spontaneous
  Country: US (occurrence: US)
  Receive Date: 20220730
  Receipt Date: 20230531
  Transmission Date: 20230721
  Serious: Yes (Other)
  Sender: FDA-Public Use
  Company Number: US-SA-SAC20220726000349

PATIENT
  Age: 52 Year
  Sex: Female

DRUGS (1)
  1. AUBAGIO [Suspect]
     Active Substance: TERIFLUNOMIDE
     Indication: Multiple sclerosis
     Dosage: 7 MG, QD
     Route: 048
     Dates: start: 20190319

REACTIONS (4)
  - Toxic epidermal necrolysis [Unknown]
  - Multiple sclerosis relapse [Unknown]
  - Scar [Unknown]
  - Pain [Unknown]

NARRATIVE: CASE EVENT DATE: 20220701
